FAERS Safety Report 24951036 (Version 1)
Quarter: 2025Q1

REPORT INFORMATION
  Report Type: Report from Study
  Country: CO (occurrence: CO)
  Receive Date: 20250210
  Receipt Date: 20250210
  Transmission Date: 20250409
  Serious: Yes (Other)
  Sender: ASTELLAS
  Company Number: CO-ASTELLAS-2024US007615

PATIENT
  Age: 66 Year
  Sex: Male
  Weight: 68 kg

DRUGS (3)
  1. PROGRAF [Suspect]
     Active Substance: TACROLIMUS
     Indication: Renal transplant
     Route: 048
  2. PROGRAF [Suspect]
     Active Substance: TACROLIMUS
     Dosage: PROGRAF XL 1MG: DAY 1, 1MG; DAY 2: 2MG, ONCE DAILY
     Route: 048
     Dates: start: 20190801, end: 202402
  3. PROGRAF [Suspect]
     Active Substance: TACROLIMUS
     Dosage: 1 MG, ONCE DAILY
     Route: 048
     Dates: start: 202402

REACTIONS (2)
  - Eyelid disorder [Unknown]
  - Eye irritation [Unknown]

NARRATIVE: CASE EVENT DATE: 20240601
